FAERS Safety Report 23560279 (Version 2)
Quarter: 2024Q1

REPORT INFORMATION
  Report Type: Report from Study
  Country: ES (occurrence: ES)
  Receive Date: 20240223
  Receipt Date: 20240301
  Transmission Date: 20240410
  Serious: Yes (Other)
  Sender: FDA-Public Use
  Company Number: ES-ALNYLAM PHARMACEUTICALS, INC.-ALN-2024-000712

PATIENT

DRUGS (4)
  1. ONPATTRO [Suspect]
     Active Substance: PATISIRAN SODIUM
     Indication: Hereditary neuropathic amyloidosis
     Dosage: UNK UNK, Q3W
     Route: 065
     Dates: start: 20230323, end: 20230323
  2. ONPATTRO [Suspect]
     Active Substance: PATISIRAN SODIUM
     Dosage: 25,7 MG (3 VIALS), Q3W
     Route: 065
     Dates: start: 20240201, end: 20240201
  3. ALPRAZOLAM [Concomitant]
     Active Substance: ALPRAZOLAM
     Indication: Product used for unknown indication
     Dosage: UNK
     Route: 065
  4. OMEPRAZOLE [Concomitant]
     Active Substance: OMEPRAZOLE
     Indication: Product used for unknown indication
     Dosage: UNK
     Route: 065

REACTIONS (4)
  - Asphyxia [Recovering/Resolving]
  - Bronchitis [Not Recovered/Not Resolved]
  - Ear pain [Not Recovered/Not Resolved]
  - Intentional dose omission [Unknown]

NARRATIVE: CASE EVENT DATE: 20240213
